FAERS Safety Report 25643852 (Version 2)
Quarter: 2025Q3

REPORT INFORMATION
  Report Type: Spontaneous
  Country: US (occurrence: US)
  Receive Date: 20250805
  Receipt Date: 20250915
  Transmission Date: 20251021
  Serious: No
  Sender: ROCHE
  Company Number: US-ROCHE-10000355054

PATIENT
  Sex: Female

DRUGS (3)
  1. XOLAIR PFS [Suspect]
     Active Substance: OMALIZUMAB
     Indication: Idiopathic urticaria
     Dosage: STRENGTH: 150MG/ML?SUBSEQUENT DOSES DATE: 01/APR/2025, 13/MAY/2025, 24/JUN/2025 AND 08/AUG/2025
     Route: 058
     Dates: start: 202503
  2. XOLAIR PFS [Suspect]
     Active Substance: OMALIZUMAB
     Indication: Seasonal allergy
     Dosage: STRENGTH: 150MG/ML
     Route: 058
  3. XOLAIR PFS [Suspect]
     Active Substance: OMALIZUMAB
     Indication: Chronic spontaneous urticaria

REACTIONS (6)
  - Drug ineffective [Unknown]
  - Urticaria [Unknown]
  - Atopy [Unknown]
  - Nasal turbinate hypertrophy [Unknown]
  - Nasal mucosal discolouration [Unknown]
  - Mechanical urticaria [Unknown]
